FAERS Safety Report 25905204 (Version 1)
Quarter: 2025Q4

REPORT INFORMATION
  Report Type: Spontaneous
  Country: US (occurrence: US)
  Receive Date: 20251010
  Receipt Date: 20251010
  Transmission Date: 20260119
  Serious: No
  Sender: SANDOZ
  Company Number: US-GLAXOSMITHKLINE-USCH2023040750

PATIENT

DRUGS (2)
  1. DICLOFENAC SODIUM [Suspect]
     Active Substance: DICLOFENAC SODIUM
     Indication: Arthritis
     Route: 065
  2. VOLTAREN [Suspect]
     Active Substance: DICLOFENAC SODIUM
     Indication: Arthritis
     Dosage: 1 DOSAGE FORM, QD
     Route: 065
     Dates: start: 20230722, end: 20230808

REACTIONS (2)
  - Rash [Recovering/Resolving]
  - Product used for unknown indication [Unknown]

NARRATIVE: CASE EVENT DATE: 20230722
